FAERS Safety Report 15072590 (Version 1)
Quarter: 2018Q2

REPORT INFORMATION
  Report Type: Report from Study
  Country: None (occurrence: US)
  Receive Date: 20180627
  Receipt Date: 20180627
  Transmission Date: 20180711
  Serious: Yes (Hospitalization)
  Sender: FDA-Public Use
  Company Number: US-ABBVIE-17K-163-2187642-00

PATIENT
  Sex: Female

DRUGS (4)
  1. HUMIRA [Suspect]
     Active Substance: ADALIMUMAB
     Indication: CROHN^S DISEASE
     Dosage: DAY 1
     Route: 058
     Dates: start: 20171130, end: 20171130
  2. HUMIRA [Suspect]
     Active Substance: ADALIMUMAB
     Dosage: DAY 15
     Route: 058
     Dates: start: 20171214, end: 20171214
  3. HUMIRA [Suspect]
     Active Substance: ADALIMUMAB
     Route: 058
     Dates: start: 20171228, end: 2018
  4. HUMIRA [Suspect]
     Active Substance: ADALIMUMAB
     Dosage: DAY 29
     Route: 058
     Dates: start: 201806

REACTIONS (17)
  - Nausea [Recovering/Resolving]
  - Diarrhoea haemorrhagic [Unknown]
  - Malaise [Recovering/Resolving]
  - Rash [Unknown]
  - Mucous stools [Unknown]
  - Rectal haemorrhage [Recovering/Resolving]
  - Abdominal pain upper [Recovering/Resolving]
  - Depressed mood [Unknown]
  - Anal fissure [Recovering/Resolving]
  - Weight decreased [Recovering/Resolving]
  - Diarrhoea [Recovering/Resolving]
  - Loss of personal independence in daily activities [Recovering/Resolving]
  - Alopecia [Unknown]
  - Haematochezia [Unknown]
  - Vomiting [Recovering/Resolving]
  - Constipation [Recovering/Resolving]
  - Decreased appetite [Recovering/Resolving]

NARRATIVE: CASE EVENT DATE: 2017
